FAERS Safety Report 14859448 (Version 1)
Quarter: 2018Q2

REPORT INFORMATION
  Report Type: Spontaneous
  Country: US (occurrence: US)
  Receive Date: 20180420
  Receipt Date: 20180420
  Transmission Date: 20180711
  Serious: No
  Sender: FDA-Public Use
  Company Number: None

PATIENT
  Age: 46 Year
  Sex: Female
  Weight: 78.75 kg

DRUGS (3)
  1. LO-ESTRIN [Concomitant]
  2. IPRATROPIUM BROMIDE NASAL SOLUTION/NASAL SPRAY [Suspect]
     Active Substance: IPRATROPIUM BROMIDE
     Indication: RHINORRHOEA
     Dosage: ?          QUANTITY:1 SPRAY(S);OTHER ROUTE:SPRAY INTO NOSTRILS?
     Dates: start: 20171220, end: 20180124
  3. METROGEL [Concomitant]
     Active Substance: METRONIDAZOLE

REACTIONS (1)
  - Blepharospasm [None]

NARRATIVE: CASE EVENT DATE: 20180117
